FAERS Safety Report 7388970-3 (Version None)
Quarter: 2011Q2

REPORT INFORMATION
  Report Type: 
  Country: None (occurrence: None)
  Receive Date: 20110401
  Receipt Date: 20110323
  Transmission Date: 20111010
  Serious: Yes (Hospitalization)
  Sender: FDA-Public Use
  Company Number: SE-ASTRAZENECA-2011SE16394

PATIENT
  Age: 70 Year
  Sex: Male

DRUGS (8)
  1. CASODEX [Suspect]
     Route: 048
     Dates: start: 20081001, end: 20081128
  2. FURADANTIN [Concomitant]
  3. DRUG NOT SHOWN [Concomitant]
  4. CASODEX [Suspect]
     Indication: PROSTATE CANCER
     Route: 048
     Dates: start: 20080411, end: 20081001
  5. PROCREN [Suspect]
     Indication: PROSTATE CANCER
     Route: 058
     Dates: start: 20081015, end: 20081112
  6. ENALAPRIL ACTAVIS [Concomitant]
  7. METOPROLOL [Concomitant]
  8. SIMVASTATIN [Concomitant]

REACTIONS (1)
  - PSYCHOTIC DISORDER [None]
